FAERS Safety Report 18255602 (Version 2)
Quarter: 2020Q4

REPORT INFORMATION
  Report Type: Spontaneous
  Country: DE (occurrence: DE)
  Receive Date: 20200910
  Receipt Date: 20201021
  Transmission Date: 20210113
  Serious: Yes (Other)
  Sender: FDA-Public Use
  Company Number: DE-EUSA PHARMA (UK) LIMITED-2020DE000207

PATIENT
  Age: 30 Year
  Sex: Female

DRUGS (4)
  1. SYLVANT [Suspect]
     Active Substance: SILTUXIMAB
     Indication: CASTLEMAN^S DISEASE
     Dosage: UNK (CYCLE 1 TO 13)
     Route: 065
     Dates: start: 201908
  2. RAMIPRIL. [Concomitant]
     Active Substance: RAMIPRIL
     Indication: PRODUCT USED FOR UNKNOWN INDICATION
     Dosage: LOW DOSE
     Route: 065
  3. PREDNISOLONE. [Concomitant]
     Active Substance: PREDNISOLONE
     Indication: PRODUCT USED FOR UNKNOWN INDICATION
     Dosage: LOW DOSE
     Route: 065
  4. SYLVANT [Suspect]
     Active Substance: SILTUXIMAB
     Dosage: UNK (CYCLE 14)
     Route: 065
     Dates: start: 20200715, end: 2020

REACTIONS (1)
  - Neutropenia [Recovered/Resolved]

NARRATIVE: CASE EVENT DATE: 20200805
